FAERS Safety Report 9689429 (Version 2)
Quarter: 2014Q2

REPORT INFORMATION
  Report Type: Spontaneous
  Country: US (occurrence: US)
  Receive Date: 20131114
  Receipt Date: 20140501
  Transmission Date: 20141212
  Serious: Yes (Hospitalization)
  Sender: FDA-Public Use
  Company Number: US-B.I. PHARMACEUTICALS,INC./RIDGEFIELD-2013-BI-36412BP

PATIENT
  Sex: Male
  Weight: 90.72 kg

DRUGS (1)
  1. PRADAXA [Suspect]
     Indication: ATRIAL FIBRILLATION
     Dosage: 300 MG
     Route: 065
     Dates: start: 20120329, end: 20120402

REACTIONS (3)
  - Pericardial haemorrhage [Unknown]
  - Cardiac tamponade [Unknown]
  - Pericardial haemorrhage [Unknown]
